FAERS Safety Report 23784193 (Version 1)
Quarter: 2024Q2

REPORT INFORMATION
  Report Type: Spontaneous
  Country: US (occurrence: US)
  Receive Date: 20240425
  Receipt Date: 20240425
  Transmission Date: 20240715
  Serious: No
  Sender: FDA-Public Use
  Company Number: US-AMGEN-USASP2024080481

PATIENT
  Sex: Female

DRUGS (3)
  1. KANJINTI [Suspect]
     Active Substance: TRASTUZUMAB-ANNS
     Indication: Endometrial cancer
     Dosage: 8 MILLIGRAM/KILOGRAM, UNK
     Route: 065
     Dates: start: 202310
  2. KANJINTI [Suspect]
     Active Substance: TRASTUZUMAB-ANNS
     Dosage: 6 MILLIGRAM/KILOGRAM, Q3WK
     Route: 065
  3. KANJINTI [Suspect]
     Active Substance: TRASTUZUMAB-ANNS
     Dosage: 8 MILLIGRAM/KILOGRAM, Q6WK
     Route: 065

REACTIONS (1)
  - Off label use [Unknown]

NARRATIVE: CASE EVENT DATE: 20231001
